FAERS Safety Report 4965042-6 (Version None)
Quarter: 2006Q1

REPORT INFORMATION
  Report Type: 
  Country: None (occurrence: None)
  Receive Date: 20060130
  Receipt Date: 20051122
  Transmission Date: 20060701
  Serious: Yes (Hospitalization)
  Sender: FDA-Public Use
  Company Number: COT_0259_2005

PATIENT
  Age: 42 Year
  Sex: Male
  Weight: 62.5964 kg

DRUGS (13)
  1. VENTAVIS [Suspect]
     Indication: PULMONARY HYPERTENSION
     Dosage: 5 MCG 6XD IH
     Route: 055
     Dates: start: 20051101
  2. VENTAVIS [Suspect]
     Indication: PULMONARY HYPERTENSION
     Dosage: 2.5 MCG ONCE IH
     Route: 055
     Dates: start: 20051101, end: 20051101
  3. FUROSEMIDE [Concomitant]
  4. REVATIO [Concomitant]
  5. VALPROIC ACID [Concomitant]
  6. PRIMODONE [Concomitant]
  7. HYSCYAMINE ER [Concomitant]
  8. POTASSIUM ER [Concomitant]
  9. ASPIRIN [Concomitant]
  10. WARFARIN [Concomitant]
  11. SPIRONOLACTONE [Concomitant]
  12. ALBUTEROL [Concomitant]
  13. AMBIEN [Concomitant]

REACTIONS (1)
  - MUSCULOSKELETAL CHEST PAIN [None]
